FAERS Safety Report 15629031 (Version 2)
Quarter: 2020Q4

REPORT INFORMATION
  Report Type: Spontaneous
  Country: US (occurrence: US)
  Receive Date: 20181116
  Receipt Date: 20201214
  Transmission Date: 20210113
  Serious: Yes (Hospitalization, Other)
  Sender: FDA-Public Use
  Company Number: US-SHIRE-US201844598

PATIENT
  Sex: Female

DRUGS (4)
  1. GATTEX [Suspect]
     Active Substance: TEDUGLUTIDE\WATER
     Indication: SHORT-BOWEL SYNDROME
     Dosage: 0.2760 UNK, 1X/DAY:QD
     Route: 058
     Dates: start: 20180304
  2. GATTEX [Suspect]
     Active Substance: TEDUGLUTIDE\WATER
     Indication: SHORT-BOWEL SYNDROME
     Dosage: 0.2760 UNK, 1X/DAY:QD
     Route: 058
     Dates: start: 20180304
  3. GATTEX [Suspect]
     Active Substance: TEDUGLUTIDE\WATER
     Indication: SHORT-BOWEL SYNDROME
     Dosage: 0.2760 UNK, 1X/DAY:QD
     Route: 058
     Dates: start: 20180304
  4. GATTEX [Suspect]
     Active Substance: TEDUGLUTIDE\WATER
     Indication: SHORT-BOWEL SYNDROME
     Dosage: 0.2760 UNK, 1X/DAY:QD
     Route: 058
     Dates: start: 20180304

REACTIONS (4)
  - Psychiatric symptom [Unknown]
  - Weight increased [Unknown]
  - Staphylococcal infection [Not Recovered/Not Resolved]
  - Parenteral nutrition [Unknown]
